FAERS Safety Report 22051103 (Version 1)
Quarter: 2023Q1

REPORT INFORMATION
  Report Type: Spontaneous
  Country: TR (occurrence: TR)
  Receive Date: 20230301
  Receipt Date: 20230301
  Transmission Date: 20230418
  Serious: Yes (Other)
  Sender: FDA-Public Use
  Company Number: TR-PFIZER INC-PV202300037733

PATIENT
  Age: 18 Year
  Sex: Male

DRUGS (2)
  1. GEMCITABINE HYDROCHLORIDE [Suspect]
     Active Substance: GEMCITABINE HYDROCHLORIDE
     Indication: Synovial sarcoma
  2. DOCETAXEL [Suspect]
     Active Substance: DOCETAXEL
     Indication: Synovial sarcoma

REACTIONS (1)
  - Bicytopenia [Unknown]
